FAERS Safety Report 6775749-6 (Version None)
Quarter: 2010Q2

REPORT INFORMATION
  Report Type: 
  Country: None (occurrence: None)
  Receive Date: 20100617
  Receipt Date: 20100608
  Transmission Date: 20101027
  Serious: Yes (Other)
  Sender: FDA-Public Use
  Company Number: US-PFIZER INC-2010073328

PATIENT
  Sex: Female

DRUGS (7)
  1. ZOLOFT [Suspect]
     Indication: DEPRESSION
     Dosage: UNK
     Route: 048
     Dates: start: 20040101
  2. ACTOS [Concomitant]
     Indication: DIABETES MELLITUS
     Dosage: UNK
  3. PIOGLITAZONE [Concomitant]
     Indication: DIABETES MELLITUS
     Dosage: 15 MG, 2X/DAY
  4. METFORMIN [Concomitant]
     Dosage: 850 MG
  5. GLIMEPIRIDE [Concomitant]
     Indication: DIABETES MELLITUS
     Dosage: 2 MG, UNK
  6. BYETTA [Concomitant]
     Dosage: 10 MCG, UNK
  7. OXYBUTYNIN [Concomitant]
     Indication: BLADDER SPASM
     Dosage: 15 MG, UNK

REACTIONS (9)
  - CARPAL TUNNEL SYNDROME [None]
  - CEREBROVASCULAR ACCIDENT [None]
  - COMA [None]
  - DRUG DEPENDENCE [None]
  - GASTROOESOPHAGEAL REFLUX DISEASE [None]
  - MUSCLE SPASMS [None]
  - SPINAL LAMINECTOMY [None]
  - STAPHYLOCOCCUS TEST POSITIVE [None]
  - THYROID NEOPLASM [None]
